FAERS Safety Report 17621114 (Version 1)
Quarter: 2020Q2

REPORT INFORMATION
  Report Type: Spontaneous
  Country: US (occurrence: US)
  Receive Date: 20200403
  Receipt Date: 20200403
  Transmission Date: 20200713
  Serious: Yes (Hospitalization)
  Sender: FDA-Public Use
  Company Number: US-TEVA-2020-US-1215545

PATIENT
  Age: 82 Year
  Sex: Female
  Weight: 72.64 kg

DRUGS (8)
  1. OMEGA 3 [Concomitant]
     Active Substance: OMEGA-3 FATTY ACIDS
  2. AUSTEDO [Suspect]
     Active Substance: DEUTETRABENAZINE
     Dosage: 6 MG = 1/2 DF
     Route: 048
     Dates: end: 202003
  3. TYLENOL [Concomitant]
     Active Substance: ACETAMINOPHEN
  4. AUSTEDO [Suspect]
     Active Substance: DEUTETRABENAZINE
     Indication: TARDIVE DYSKINESIA
     Dosage: 24 MILLIGRAM DAILY;
     Route: 048
     Dates: start: 201912
  5. ASPIRIN. [Concomitant]
     Active Substance: ASPIRIN
  6. MAGNESIUM [Concomitant]
     Active Substance: MAGNESIUM
  7. LORATADINE. [Concomitant]
     Active Substance: LORATADINE
  8. LINZESS [Concomitant]
     Active Substance: LINACLOTIDE

REACTIONS (5)
  - Myocardial infarction [Unknown]
  - Adverse event [Unknown]
  - Wrong technique in product usage process [Unknown]
  - Off label use [Unknown]
  - Therapy cessation [Unknown]

NARRATIVE: CASE EVENT DATE: 202003
